FAERS Safety Report 4549053-0 (Version None)
Quarter: 2005Q1

REPORT INFORMATION
  Report Type: 
  Country: None (occurrence: None)
  Receive Date: 20041227
  Receipt Date: 20041118
  Transmission Date: 20050727
  Serious: No
  Sender: FDA-Public Use
  Company Number: 04P-163-0264215-00

PATIENT
  Age: 57 Year
  Sex: Female
  Weight: 77.1115 kg

DRUGS (7)
  1. HUMIRA [Suspect]
     Indication: RHEUMATOID ARTHRITIS
     Dosage: 40 MG, 1 IN 2 WK, SUBCUTANEOUS
     Route: 058
     Dates: start: 20040426
  2. ISONIAZID [Suspect]
     Indication: TUBERCULOSIS PROPHYLAXIS
     Dates: start: 20040401
  3. INSULIN [Concomitant]
  4. CO-DIOVAN [Concomitant]
  5. FUROSEMIDE [Concomitant]
  6. ESOMEPRAZOLE [Concomitant]
  7. CELECOXIB [Concomitant]

REACTIONS (3)
  - DRUG INEFFECTIVE [None]
  - PRURITUS [None]
  - RASH [None]
